FAERS Safety Report 5874939-4 (Version None)
Quarter: 2008Q3

REPORT INFORMATION
  Report Type: 
  Country: None (occurrence: None)
  Receive Date: 20080904
  Receipt Date: 20080819
  Transmission Date: 20090109
  Serious: Yes (Hospitalization)
  Sender: FDA-Public Use
  Company Number: TW-BRACCO-000002

PATIENT
  Age: 48 Year
  Sex: Female

DRUGS (2)
  1. BARIUM SULFATE (BARIUM SULPHATE) [Suspect]
     Indication: ANASTOMOTIC LEAK
     Dosage: ADMINISTERED VIA ILEOSTOMY STOMA.
     Route: 050
  2. BARIUM SULFATE (BARIUM SULPHATE) [Suspect]
     Indication: BARIUM SWALLOW
     Dosage: ADMINISTERED VIA ILEOSTOMY STOMA.
     Route: 050

REACTIONS (1)
  - APPENDICITIS [None]
